FAERS Safety Report 4538263-4 (Version None)
Quarter: 2004Q4

REPORT INFORMATION
  Report Type: 
  Country: None (occurrence: None)
  Receive Date: 20041221
  Receipt Date: 20041206
  Transmission Date: 20050328
  Serious: Yes (Disabling)
  Sender: FDA-Public Use
  Company Number: 2004SE06769

PATIENT
  Age: 29 Year
  Sex: Male
  Weight: 80 kg

DRUGS (1)
  1. SEROQUEL [Suspect]
     Indication: PSYCHOTIC DISORDER
     Dosage: 750 MG DAILY PO
     Route: 048
     Dates: start: 20040902, end: 20041028

REACTIONS (3)
  - ATONIC URINARY BLADDER [None]
  - CONSTIPATION [None]
  - URINARY RETENTION [None]
